FAERS Safety Report 17307459 (Version 1)
Quarter: 2020Q1

REPORT INFORMATION
  Report Type: Spontaneous
  Country: US (occurrence: US)
  Receive Date: 20200123
  Receipt Date: 20200123
  Transmission Date: 20200409
  Serious: Yes (Other)
  Sender: FDA-Public Use
  Company Number: US-ASTRAZENECA-2020SE11366

PATIENT
  Age: 0 Year
  Sex: Male
  Weight: 7.1 kg

DRUGS (6)
  1. VITAMIN D [Concomitant]
     Active Substance: VITAMIN D NOS
  2. TOPAMAX [Concomitant]
     Active Substance: TOPIRAMATE
  3. KEPPRA [Concomitant]
     Active Substance: LEVETIRACETAM
  4. CHOLBAM [Concomitant]
     Active Substance: CHOLIC ACID
  5. SYNAGIS [Suspect]
     Active Substance: PALIVIZUMAB
     Indication: METABOLIC DISORDER
     Route: 030
  6. SYNAGIS [Suspect]
     Active Substance: PALIVIZUMAB
     Indication: METABOLIC DISORDER
     Route: 030
     Dates: start: 20191225, end: 20191225

REACTIONS (1)
  - Seizure [Unknown]
